FAERS Safety Report 21391127 (Version 1)
Quarter: 2022Q3

REPORT INFORMATION
  Report Type: Spontaneous
  Country: US (occurrence: US)
  Receive Date: 20220929
  Receipt Date: 20220929
  Transmission Date: 20221027
  Serious: No
  Sender: FDA-Public Use
  Company Number: US-BRISTOL-MYERS SQUIBB COMPANY-2022-113088

PATIENT
  Age: 81 Year
  Sex: Female
  Weight: 36.74 kg

DRUGS (1)
  1. REVLIMID [Suspect]
     Active Substance: LENALIDOMIDE
     Indication: Plasma cell myeloma
     Dosage: THERAPY GIVEN FOR 3W, 1W OFF
     Route: 048
     Dates: start: 20220401

REACTIONS (1)
  - Swelling [Not Recovered/Not Resolved]
